FAERS Safety Report 7435603-3 (Version None)
Quarter: 2011Q2

REPORT INFORMATION
  Report Type: 
  Country: None (occurrence: None)
  Receive Date: 20110418
  Receipt Date: 20110401
  Transmission Date: 20111010
  Serious: Yes (Death)
  Sender: FDA-Public Use
  Company Number: AE 2011-137

PATIENT
  Age: 48 Year
  Sex: Male

DRUGS (2)
  1. CLOZAPINE [Suspect]
     Dosage: 850 MG DAILY PO
     Route: 048
  2. LAMOTRIGINE [Concomitant]

REACTIONS (5)
  - CONSTIPATION [None]
  - PULMONARY OEDEMA [None]
  - FAECALOMA [None]
  - HYPERTENSION [None]
  - LEFT VENTRICULAR HYPERTROPHY [None]
